FAERS Safety Report 10228598 (Version 1)
Quarter: 2014Q2

REPORT INFORMATION
  Report Type: Spontaneous
  Country: US (occurrence: US)
  Receive Date: 20140610
  Receipt Date: 20140610
  Transmission Date: 20141212
  Serious: Yes (Other)
  Sender: FDA-Public Use
  Company Number: US-BAYER-2014-083913

PATIENT
  Age: 23 Year
  Sex: Female

DRUGS (8)
  1. OCELLA [Suspect]
  2. PREDNISONE [Concomitant]
     Dosage: 10 MG, UNK
     Route: 048
     Dates: start: 20100809
  3. HYDROCODONE/ACETAMINOPHEN [Concomitant]
     Dosage: UNK
     Route: 048
     Dates: start: 20100923
  4. PROAIR HFA [Concomitant]
     Dosage: 90 ?G, INHALATION
     Dates: start: 20100923
  5. ADVAIR [Concomitant]
     Dosage: 250-50 DISKUS, INHALATION
     Dates: start: 20101017
  6. AZITHROMYCIN [Concomitant]
     Dosage: 250 MG, UNK
     Route: 048
     Dates: start: 20101017
  7. LEVAQUIN [Concomitant]
     Dosage: 500 MG, UNK
     Route: 048
     Dates: start: 20101101
  8. AMOXICILLIN W/CLAVULANATE POTASSIUM [Concomitant]
     Dosage: 875-125 MG
     Route: 048
     Dates: start: 20100923

REACTIONS (1)
  - Pulmonary embolism [None]
